FAERS Safety Report 4589412-3 (Version None)
Quarter: 2005Q1

REPORT INFORMATION
  Report Type: 
  Country: None (occurrence: None)
  Receive Date: 20050216
  Receipt Date: 20050203
  Transmission Date: 20050727
  Serious: Yes (Hospitalization)
  Sender: FDA-Public Use
  Company Number: 2005024802

PATIENT
  Age: 18 Year
  Sex: Male

DRUGS (3)
  1. VFEND [Suspect]
     Indication: ILL-DEFINED DISORDER
  2. CEFEPIME HYDROCHLORIDE (CEFEPIME HYDROCHLORIDE) [Concomitant]
  3. VANCOMYCIN HYDROCHLORIDE (VANCOMYCIN HYDROCHLORIDE) [Concomitant]

REACTIONS (1)
  - CARDIAC FAILURE [None]
